FAERS Safety Report 8290336-9 (Version None)
Quarter: 2012Q2

REPORT INFORMATION
  Report Type: 
  Country: None (occurrence: None)
  Receive Date: 20120413
  Receipt Date: 20120413
  Transmission Date: 20120825
  Serious: No
  Sender: FDA-Public Use
  Company Number: None

PATIENT
  Age: 78 Year
  Sex: Female
  Weight: 76.2043 kg

DRUGS (1)
  1. TERBINAFINE HCL [Suspect]

REACTIONS (2)
  - WEIGHT DECREASED [None]
  - DYSGEUSIA [None]
